FAERS Safety Report 20324437 (Version 3)
Quarter: 2022Q1

REPORT INFORMATION
  Report Type: Report from Study
  Country: JP (occurrence: JP)
  Receive Date: 20220111
  Receipt Date: 20220124
  Transmission Date: 20220423
  Serious: Yes (Hospitalization)
  Sender: FDA-Public Use
  Company Number: JP-ONO-2022JP000169

PATIENT
  Age: 59 Year
  Sex: Female
  Weight: 64.8 kg

DRUGS (9)
  1. NIVOLUMAB [Suspect]
     Active Substance: NIVOLUMAB
     Indication: Colorectal cancer
     Dosage: 360 MILLIGRAM, Q3WK
     Route: 041
     Dates: start: 20210426
  2. BMS-986310 [Suspect]
     Active Substance: BMS-986310
     Indication: Colorectal cancer
     Dosage: 40 MG, EVERYDAY
     Route: 048
     Dates: start: 20210426
  3. CAPECITABINE [Suspect]
     Active Substance: CAPECITABINE
     Indication: Colorectal cancer
     Dosage: 1000 MG/M2, Q12H, 14 DAYS ADMINISTRATION, 7 DAYS WITHDRAWAL
     Route: 065
     Dates: start: 20210426
  4. OXALIPLATIN [Concomitant]
     Active Substance: OXALIPLATIN
     Indication: Colorectal cancer
     Dosage: 130 MG/M2, Q3W
     Route: 065
     Dates: start: 20210426
  5. OXALIPLATIN [Concomitant]
     Active Substance: OXALIPLATIN
     Dosage: 130 MG/M2, Q3W
     Route: 065
     Dates: start: 20210426, end: 20211018
  6. BEVACIZUMAB [Concomitant]
     Active Substance: BEVACIZUMAB
     Indication: Colorectal cancer
     Dosage: 7.5 MG/KG, Q3W
     Route: 065
     Dates: start: 20210426
  7. DIETARY SUPPLEMENT\PROBIOTICS [Concomitant]
     Active Substance: DIETARY SUPPLEMENT\PROBIOTICS
     Indication: Prophylaxis
     Dosage: 1 GRAM, Q8H, AFTER EACH MEAL
     Route: 048
     Dates: start: 20211228
  8. HEPARINOID [Concomitant]
     Indication: Prophylaxis
     Dosage: APPROPRIATELY, Q8H
     Route: 061
     Dates: start: 20210426
  9. FAMOTIDINE [Concomitant]
     Active Substance: FAMOTIDINE
     Indication: Abdominal pain upper
     Dosage: 20 MG, Q12H, AFTER BREAKFAST AND DINNER
     Route: 048
     Dates: start: 20211124

REACTIONS (1)
  - Pneumonitis [Not Recovered/Not Resolved]

NARRATIVE: CASE EVENT DATE: 20220104
